FAERS Safety Report 10912305 (Version 3)
Quarter: 2016Q4

REPORT INFORMATION
  Report Type: Spontaneous
  Country: US (occurrence: US)
  Receive Date: 20150313
  Receipt Date: 20161212
  Transmission Date: 20170206
  Serious: No
  Sender: FDA-Public Use
  Company Number: US-PFIZER INC-2015088611

PATIENT
  Age: 63 Year
  Sex: Female
  Weight: 107 kg

DRUGS (14)
  1. LYRICA [Suspect]
     Active Substance: PREGABALIN
     Dosage: 150 MG, 2X/DAY
     Dates: start: 2009
  2. LYRICA [Suspect]
     Active Substance: PREGABALIN
     Dosage: 50 MG, 1X/DAY
     Route: 048
     Dates: start: 20160815
  3. CELEBREX [Concomitant]
     Active Substance: CELECOXIB
     Dosage: UNK, 2X/DAY
  4. SYNTHROID [Concomitant]
     Active Substance: LEVOTHYROXINE SODIUM
     Dosage: 125 UG, 1X/DAY(EVERY MORNING (BEFORE BREAKFAST) TAKE ON EMPTY STOMACH)
     Route: 048
     Dates: start: 20161102
  5. LYRICA [Suspect]
     Active Substance: PREGABALIN
     Indication: FIBROMYALGIA
     Dosage: 50 MG, 1X/DAY
     Dates: start: 2009
  6. CELEBREX [Concomitant]
     Active Substance: CELECOXIB
     Dosage: 200 MG, 2X/DAY
     Route: 048
     Dates: start: 20160413
  7. LYRICA [Suspect]
     Active Substance: PREGABALIN
     Dosage: 150 MG, 2X/DAY
     Route: 048
     Dates: start: 20160922
  8. LEVOTHYROXINE. [Concomitant]
     Active Substance: LEVOTHYROXINE
     Dosage: UNK, 1X/DAY
  9. OXYCODONE [Concomitant]
     Active Substance: OXYCODONE
     Dosage: 5 MG, 2X/DAY
  10. LYRICA [Suspect]
     Active Substance: PREGABALIN
     Dosage: 50 MG, DAILY
     Route: 048
     Dates: start: 20161128
  11. BUMEX [Concomitant]
     Active Substance: BUMETANIDE
     Dosage: 1 MG, AS NEEDED(DAILY)
     Route: 048
     Dates: start: 20161125
  12. COLACE [Concomitant]
     Active Substance: DOCUSATE SODIUM
     Dosage: 100 MG, 2X/DAY
     Route: 048
     Dates: start: 20151230
  13. FLEXERIL [Concomitant]
     Active Substance: CYCLOBENZAPRINE HYDROCHLORIDE
     Dosage: 10 MG, 3X/DAY
     Route: 048
     Dates: start: 20161018
  14. OXYCODONE HYDROCHLORIDE. [Concomitant]
     Active Substance: OXYCODONE HYDROCHLORIDE
     Dosage: 10 MG, AS NEEDED(EVERY 6 HOURS)
     Route: 048
     Dates: start: 20161117

REACTIONS (5)
  - Retching [Unknown]
  - Upper-airway cough syndrome [Unknown]
  - Nasopharyngitis [Unknown]
  - Cough [Unknown]
  - Drug dispensing error [Unknown]

NARRATIVE: CASE EVENT DATE: 20150305
